FAERS Safety Report 20751797 (Version 1)
Quarter: 2022Q2

REPORT INFORMATION
  Report Type: Spontaneous
  Country: US (occurrence: US)
  Receive Date: 20220426
  Receipt Date: 20220426
  Transmission Date: 20220721
  Serious: No
  Sender: FDA-Public Use
  Company Number: US-VERTEX PHARMACEUTICALS-2020-003083

PATIENT
  Age: 34 Year
  Sex: Female
  Weight: 66 kg

DRUGS (35)
  1. TRIKAFTA [Suspect]
     Active Substance: ELEXACAFTOR\IVACAFTOR\TEZACAFTOR
     Indication: Cystic fibrosis
     Dosage: ONE ORANGE TAB AM AND ONE BLUE TAB PM
     Route: 048
     Dates: start: 201911
  2. TRIKAFTA [Suspect]
     Active Substance: ELEXACAFTOR\IVACAFTOR\TEZACAFTOR
     Dosage: FULL DOSE, 2 TABS AM AND 1 TAB PM
     Route: 048
     Dates: start: 20191216, end: 20200211
  3. TRIKAFTA [Suspect]
     Active Substance: ELEXACAFTOR\IVACAFTOR\TEZACAFTOR
     Dosage: ONE ORANGE TAB
     Route: 048
     Dates: start: 20200429, end: 202005
  4. TRIKAFTA [Suspect]
     Active Substance: ELEXACAFTOR\IVACAFTOR\TEZACAFTOR
     Dosage: ONE ORANGE TAB AM AND ONE BLUE TAB PM
     Route: 048
     Dates: start: 202005, end: 202005
  5. TRIKAFTA [Suspect]
     Active Substance: ELEXACAFTOR\IVACAFTOR\TEZACAFTOR
     Dosage: 2 ORANGE TABS AM AND 1 BLUE TAB PM
     Route: 048
  6. TRIKAFTA [Suspect]
     Active Substance: ELEXACAFTOR\IVACAFTOR\TEZACAFTOR
     Dosage: ONE ORANGE TABLET A DAY
     Route: 048
  7. TRIKAFTA [Suspect]
     Active Substance: ELEXACAFTOR\IVACAFTOR\TEZACAFTOR
     Dosage: 1 ORANGE PILL A DAY, ADDED BLUE PILL IN DOSAGE
     Route: 048
  8. TRIKAFTA [Suspect]
     Active Substance: ELEXACAFTOR\IVACAFTOR\TEZACAFTOR
     Dosage: ALTERING DOSAGE
     Route: 048
  9. NOVOLOG [Concomitant]
     Active Substance: INSULIN ASPART
     Dosage: UNK
  10. LEVEMIR [Concomitant]
     Active Substance: INSULIN DETEMIR
     Dosage: UNK
  11. CREON [Concomitant]
     Active Substance: PANCRELIPASE AMYLASE\PANCRELIPASE LIPASE\PANCRELIPASE PROTEASE
     Dosage: UNK
  12. ZITHROMAX [Concomitant]
     Active Substance: AZITHROMYCIN DIHYDRATE
     Dosage: UNK
  13. PREDNISONE [Concomitant]
     Active Substance: PREDNISONE
     Dosage: UNK
  14. ZAFIRLUKAST [Concomitant]
     Active Substance: ZAFIRLUKAST
     Dosage: UNK
  15. ADVAIR HFA [Concomitant]
     Active Substance: FLUTICASONE PROPIONATE\SALMETEROL XINAFOATE
     Dosage: UNK
  16. XOPENEX [Concomitant]
     Active Substance: LEVALBUTEROL HYDROCHLORIDE
     Dosage: UNK
  17. BUDESONIDE [Concomitant]
     Active Substance: BUDESONIDE
     Dosage: UNK
  18. ACETYLCYSTEINE [Concomitant]
     Active Substance: ACETYLCYSTEINE
     Dosage: UNK
  19. AZITHROMYCIN [Concomitant]
     Active Substance: AZITHROMYCIN
     Dosage: UNK, QD
  20. CALCIUM\VITAMIN D [Concomitant]
     Active Substance: CALCIUM\VITAMIN D
     Dosage: UNK
  21. CETIRIZINE [Concomitant]
     Active Substance: CETIRIZINE HYDROCHLORIDE
     Dosage: QD
  22. FERROUS SULFATE [Concomitant]
     Active Substance: FERROUS SULFATE
  23. FLUTICASONE [Concomitant]
     Active Substance: FLUTICASONE
     Dosage: NASAL SPRAY
  24. MIRALAX [Concomitant]
     Active Substance: POLYETHYLENE GLYCOL 3350
  25. PULMOZYME [Concomitant]
     Active Substance: DORNASE ALFA
     Dosage: NEBULIZER
  26. FAMOTIDINE [Concomitant]
     Active Substance: FAMOTIDINE
  27. CALCIUM [Concomitant]
     Active Substance: CALCIUM
     Dosage: 600 MG
  28. DOCONEXENT\MINERALS\VITAMINS [Concomitant]
     Active Substance: DOCONEXENT\MINERALS\VITAMINS
     Dosage: 200 MG
  29. SODIUM CHLORIDE [Concomitant]
     Active Substance: SODIUM CHLORIDE
  30. ESOMEPRAZOLE MAGNESIUM [Concomitant]
     Active Substance: ESOMEPRAZOLE MAGNESIUM
  31. COLISTIMETHATE SODIUM [Concomitant]
     Active Substance: COLISTIMETHATE SODIUM
  32. ALBUTEROL [Concomitant]
     Active Substance: ALBUTEROL
  33. LEVALBUTEROL [Concomitant]
     Active Substance: LEVALBUTEROL
  34. VALACYCLOVIR HYDROCHLORIDE [Concomitant]
     Active Substance: VALACYCLOVIR HYDROCHLORIDE
  35. FLUTICASONE PROPIONATE [Concomitant]
     Active Substance: FLUTICASONE PROPIONATE

REACTIONS (3)
  - Exposure during pregnancy [Unknown]
  - Diabetes mellitus inadequate control [Unknown]
  - Gestational diabetes [Unknown]

NARRATIVE: CASE EVENT DATE: 20191201
